FAERS Safety Report 20007068 (Version 10)
Quarter: 2023Q2

REPORT INFORMATION
  Report Type: Report from Study
  Country: US (occurrence: US)
  Receive Date: 20211028
  Receipt Date: 20230606
  Transmission Date: 20230722
  Serious: Yes (Hospitalization, Other)
  Sender: FDA-Public Use
  Company Number: US-SHIRE-US202004683

PATIENT
  Age: 53 Year
  Sex: Female
  Weight: 49 kg

DRUGS (34)
  1. HUMAN IMMUNOGLOBULIN G [Suspect]
     Active Substance: HUMAN IMMUNOGLOBULIN G
     Indication: Primary immunodeficiency syndrome
     Dosage: 5 GRAM, 1/WEEK
     Route: 065
  2. HUMAN IMMUNOGLOBULIN G [Suspect]
     Active Substance: HUMAN IMMUNOGLOBULIN G
     Indication: Immunodeficiency
     Dosage: 5 GRAM, 1/WEEK
     Route: 058
  3. HUMAN IMMUNOGLOBULIN G [Suspect]
     Active Substance: HUMAN IMMUNOGLOBULIN G
     Indication: Secondary immunodeficiency
  4. COVID-19 VACCINE NOS [Suspect]
     Active Substance: COVID-19 VACCINE NOS
     Indication: Product used for unknown indication
     Dosage: UNK
     Route: 065
     Dates: start: 20220930
  5. DIPHENHYDRAMINE [Concomitant]
     Active Substance: DIPHENHYDRAMINE
  6. XANAX [Concomitant]
     Active Substance: ALPRAZOLAM
  7. ONDANSETRON HYDROCHLORIDE [Concomitant]
     Active Substance: ONDANSETRON HYDROCHLORIDE
  8. MIGRANAL [Concomitant]
     Active Substance: DIHYDROERGOTAMINE MESYLATE
  9. HYDROCODONE BITARTRATE AND ACETAMINOPHEN [Concomitant]
     Active Substance: ACETAMINOPHEN\HYDROCODONE BITARTRATE
  10. HYOSCYAMINE SULFATE [Concomitant]
     Active Substance: HYOSCYAMINE SULFATE
  11. EPINEPHRINE [Concomitant]
     Active Substance: EPINEPHRINE
  12. SIMVASTATIN [Concomitant]
     Active Substance: SIMVASTATIN
  13. ADDERALL [Concomitant]
     Active Substance: AMPHETAMINE ASPARTATE\AMPHETAMINE SULFATE\DEXTROAMPHETAMINE SACCHARATE\DEXTROAMPHETAMINE SULFATE
  14. ALLEGRA ALLERGY [Concomitant]
     Active Substance: FEXOFENADINE HYDROCHLORIDE
  15. VITAMIN D3 [Concomitant]
     Active Substance: CHOLECALCIFEROL
  16. SUDAFED [Concomitant]
     Active Substance: PSEUDOEPHEDRINE HYDROCHLORIDE
  17. LIDOCAINE\PRILOCAINE [Concomitant]
     Active Substance: LIDOCAINE\PRILOCAINE
  18. BUPROPION HYDROCHLORIDE [Concomitant]
     Active Substance: BUPROPION HYDROCHLORIDE
  19. MELATONIN [Concomitant]
     Active Substance: MELATONIN
  20. BOTOX [Concomitant]
     Active Substance: ONABOTULINUMTOXINA
  21. VYEPTI [Concomitant]
     Active Substance: EPTINEZUMAB-JJMR
  22. CALCIUM [Concomitant]
     Active Substance: CALCIUM
  23. TROKENDI XR [Concomitant]
     Active Substance: TOPIRAMATE
  24. CELEBREX [Concomitant]
     Active Substance: CELECOXIB
  25. PROVERA [Concomitant]
     Active Substance: MEDROXYPROGESTERONE ACETATE
  26. AMBIEN [Concomitant]
     Active Substance: ZOLPIDEM TARTRATE
  27. PANTOPRAZOLE SODIUM [Concomitant]
     Active Substance: PANTOPRAZOLE SODIUM
  28. VITAMIN B [Concomitant]
     Active Substance: VITAMIN B
  29. RELPAX [Concomitant]
     Active Substance: ELETRIPTAN HYDROBROMIDE
  30. LEVALBUTEROL TARTRATE [Concomitant]
     Active Substance: LEVALBUTEROL TARTRATE
  31. PEPCID AC [Concomitant]
     Active Substance: FAMOTIDINE
  32. ACETAMINOPHEN [Concomitant]
     Active Substance: ACETAMINOPHEN
  33. BENEFIBER [Concomitant]
     Active Substance: STARCH, WHEAT
  34. PFIZER-BIONTECH COVID-19 VACCINE [Concomitant]
     Active Substance: TOZINAMERAN

REACTIONS (17)
  - Pseudomonas infection [Unknown]
  - Gastrointestinal disorder [Unknown]
  - Cystic fibrosis [Unknown]
  - Aspiration [Unknown]
  - Bronchiectasis [Unknown]
  - Infection [Unknown]
  - Inability to afford medication [Unknown]
  - Needle issue [Unknown]
  - Fatigue [Unknown]
  - Immunisation reaction [Unknown]
  - Migraine [Unknown]
  - Hypersensitivity [Unknown]
  - Infusion site pain [Unknown]
  - Influenza like illness [Recovered/Resolved]
  - Headache [Unknown]
  - COVID-19 [Unknown]
  - Inappropriate schedule of product administration [Unknown]

NARRATIVE: CASE EVENT DATE: 20200204
